FAERS Safety Report 6413628-4 (Version None)
Quarter: 2009Q4

REPORT INFORMATION
  Report Type: 
  Country: None (occurrence: None)
  Receive Date: 20091026
  Receipt Date: 20091014
  Transmission Date: 20100525
  Serious: Yes (Other)
  Sender: FDA-Public Use
  Company Number: US-ASTRAZENECA-2009SE20065

PATIENT
  Sex: Male

DRUGS (2)
  1. SYMBICORT [Suspect]
     Route: 055
  2. ASMANEX TWISTHALER [Suspect]
     Route: 065

REACTIONS (1)
  - HYPERTROPHIC CARDIOMYOPATHY [None]
